FAERS Safety Report 20362883 (Version 2)
Quarter: 2022Q1

REPORT INFORMATION
  Report Type: Spontaneous
  Country: US (occurrence: US)
  Receive Date: 20220121
  Receipt Date: 20220315
  Transmission Date: 20220423
  Serious: No
  Sender: FDA-Public Use
  Company Number: US-SANOFI-00935459

PATIENT
  Age: 70 Year
  Sex: Female

DRUGS (1)
  1. SOLIQUA 100/33 [Suspect]
     Active Substance: INSULIN GLARGINE\LIXISENATIDE
     Dosage: 40 IU, QD
     Dates: start: 2021

REACTIONS (4)
  - Urine odour abnormal [Unknown]
  - Injection site discomfort [Unknown]
  - Off label use [Unknown]
  - Faeces hard [Unknown]

NARRATIVE: CASE EVENT DATE: 20210101
